FAERS Safety Report 9226699 (Version 1)
Quarter: 2013Q2

REPORT INFORMATION
  Report Type: Spontaneous
  Country: US (occurrence: US)
  Receive Date: 20130412
  Receipt Date: 20130412
  Transmission Date: 20140414
  Serious: No
  Sender: FDA-Public Use
  Company Number: US-PFIZER INC-2013112858

PATIENT
  Age: 61 Year
  Sex: Male
  Weight: 104 kg

DRUGS (2)
  1. ADVIL [Suspect]
     Indication: FATIGUE
     Dosage: (TOOK COUPLE OF IBUPROFEN CAPLETS), AS NEEDED
     Route: 048
     Dates: start: 20130408
  2. ADVIL [Suspect]
     Indication: MYALGIA

REACTIONS (1)
  - Tinnitus [Not Recovered/Not Resolved]
